FAERS Safety Report 17751404 (Version 5)
Quarter: 2022Q1

REPORT INFORMATION
  Report Type: Spontaneous
  Country: US (occurrence: US)
  Receive Date: 20200506
  Receipt Date: 20220329
  Transmission Date: 20220423
  Serious: No
  Sender: FDA-Public Use
  Company Number: US-SA-2019SA123618

PATIENT
  Age: 27 Year
  Sex: Male

DRUGS (2)
  1. CEREZYME [Suspect]
     Active Substance: IMIGLUCERASE
     Indication: Gaucher^s disease
     Dosage: 2400 UNITS, QOW
     Route: 042
     Dates: start: 20110923
  2. CEREZYME [Suspect]
     Active Substance: IMIGLUCERASE
     Dosage: 2400 UNITS, QOW
     Route: 042
     Dates: start: 20160302

REACTIONS (3)
  - Ill-defined disorder [Unknown]
  - Inappropriate schedule of product administration [Unknown]
  - Product dose omission issue [Unknown]
